FAERS Safety Report 5243174-5 (Version None)
Quarter: 2007Q1

REPORT INFORMATION
  Report Type: 
  Country: None (occurrence: None)
  Receive Date: 20070221
  Receipt Date: 20070209
  Transmission Date: 20070707
  Serious: Yes (Other)
  Sender: FDA-Public Use
  Company Number: US-PFIZER INC-2007011452

PATIENT
  Sex: Female
  Weight: 49.9 kg

DRUGS (13)
  1. CHANTIX [Suspect]
     Indication: SMOKING CESSATION THERAPY
     Dates: start: 20070118, end: 20070131
  2. METHYLPREDNISOLONE 16MG TAB [Suspect]
     Indication: BACK DISORDER
  3. METHYLPREDNISOLONE 16MG TAB [Suspect]
     Indication: SCIATIC NERVE NEUROPATHY
  4. TOPROL-XL [Concomitant]
  5. CRESTOR [Concomitant]
  6. EFFEXOR XR [Concomitant]
  7. DEXEDRINE ^MEDEVA^ [Concomitant]
  8. NORVASC [Concomitant]
  9. VITAMIN CAP [Concomitant]
  10. CALCIUM [Concomitant]
  11. VITAMIN E [Concomitant]
  12. ACTONEL [Concomitant]
  13. ZOSTER IMMUNOGLOBULIN [Concomitant]
     Dates: start: 20061119

REACTIONS (5)
  - DISCOMFORT [None]
  - OEDEMA [None]
  - PRURITUS [None]
  - RASH [None]
  - SKIN DISCOLOURATION [None]
